FAERS Safety Report 6260942-1 (Version None)
Quarter: 2009Q3

REPORT INFORMATION
  Report Type: 
  Country: None (occurrence: None)
  Receive Date: 20090709
  Receipt Date: 20090629
  Transmission Date: 20100115
  Serious: Yes (Hospitalization)
  Sender: FDA-Public Use
  Company Number: 11592284

PATIENT
  Age: 35 Year
  Sex: Male

DRUGS (20)
  1. STOCRIN CAPS 200 MG [Suspect]
     Indication: HIV INFECTION
     Dosage: INTERRUPTED 08NOV00, RESTARTED 16NOV00-16MAR07,01APR07-20APR07,08JUN07
     Route: 048
     Dates: start: 19991004
  2. ZERIT [Suspect]
     Indication: HIV INFECTION
     Dosage: STOPPED ON 03OCT99
     Route: 048
     Dates: start: 19970501, end: 19991003
  3. EPIVIR [Suspect]
     Indication: HIV INFECTION
     Dosage: 600MG/DAILY 16NOV00-CONTD 01MAY1997-03OCT99,150MG BID
     Route: 048
     Dates: start: 19970501
  4. NORVIR [Suspect]
     Indication: HIV INFECTION
     Dosage: 400 MG/BID 20JAN-3OCT99, 200 MG/BID 9OCT99-8NOV00  400 MG/DAY 16NOV00-08AP04  18JAN99:300MG
     Route: 048
     Dates: start: 19990118
  5. ZIAGEN [Suspect]
     Indication: HIV INFECTION
     Dosage: THERAPY INTERRUPTED 0811/00, RESTARTED 16/11/00,TOTAL DOSE:600 MG.TABS
     Route: 048
     Dates: start: 19991004, end: 20070316
  6. INVIRASE [Suspect]
     Indication: HIV INFECTION
     Dosage: STOPPED ON 03OCT99 FORMULATION: CAP
     Route: 048
     Dates: start: 19990118, end: 19991003
  7. PROZEI [Suspect]
     Indication: HIV INFECTION
     Dosage: THERAPY INTERRUPTED 08/11/00, RESTARTED 16/11/00 FORMULATION: CAP
     Route: 048
     Dates: start: 19991004, end: 20040311
  8. KALETRA [Suspect]
     Indication: HIV INFECTION
     Dosage: 08JUN07-25JUN07:4 DOSAGE FORM 26JUN07:6 DOSAGE FORM
     Route: 048
     Dates: start: 20070608
  9. AMIKACIN SULFATE [Concomitant]
     Indication: ATYPICAL MYCOBACTERIAL INFECTION
     Dosage: FORMULATION: INJ
     Route: 041
     Dates: start: 19990903, end: 19991021
  10. CIPROXAN [Concomitant]
     Indication: ATYPICAL MYCOBACTERIAL INFECTION
     Dosage: FORMULATION: TAB
     Route: 048
     Dates: start: 19990826, end: 19991021
  11. ALOSITOL [Concomitant]
     Indication: HYPERURICAEMIA
     Dosage: TABS
     Route: 048
     Dates: end: 20040905
  12. AZITHROMYCIN [Concomitant]
     Indication: ATYPICAL MYCOBACTERIAL INFECTION
     Dosage: THERAPY INTERRUPTED 10/21/99, RESTARTED 10/22/99 FORMULATION: TAB AZITHROMYCIN HYDRATE
     Route: 048
     Dates: start: 19991002, end: 19991021
  13. EBUTOL [Concomitant]
     Indication: ATYPICAL MYCOBACTERIAL INFECTION
     Dosage: FORMULATION: TAB
     Route: 048
     Dates: start: 19990826, end: 19991021
  14. METRONIDAZOLE [Concomitant]
     Indication: ATYPICAL MYCOBACTERIAL INFECTION
     Dates: start: 19991016, end: 19991026
  15. BAKTAR [Concomitant]
     Indication: PROPHYLAXIS
     Dosage: FORMULATION: TAB
     Route: 048
     Dates: end: 20010331
  16. CLARITHROMYCIN [Concomitant]
     Indication: ATYPICAL MYCOBACTERIAL INFECTION
     Dosage: TABS.600 MG IN MORNING AND 400 MG IN EVENING
     Route: 048
     Dates: start: 19990826, end: 19991001
  17. POLARAMINE [Concomitant]
     Indication: PRURITUS
     Dosage: TOTAL DOSE:12 MG.TABS
     Route: 048
     Dates: start: 19990201, end: 19990208
  18. CRIXIVAN [Concomitant]
     Indication: HIV INFECTION
     Dosage: FORMULATION: CAPS
     Route: 048
     Dates: start: 19970501, end: 19990118
  19. DEXCHLORPHENIRAMINE MALEATE [Concomitant]
     Dates: start: 19990201, end: 19990208
  20. INDINIVIR SULFATE [Concomitant]
     Indication: HIV INFECTION
     Dosage: CAPS
     Route: 048
     Dates: start: 10070501, end: 19990118

REACTIONS (4)
  - HERPES ZOSTER [None]
  - HYPERLIPIDAEMIA [None]
  - LYMPHOMA [None]
  - PSEUDOMEMBRANOUS COLITIS [None]
